APPROVED DRUG PRODUCT: PSEUDO-12
Active Ingredient: PSEUDOEPHEDRINE POLISTIREX
Strength: EQ 60MG HYDROCHLORIDE/5ML
Dosage Form/Route: SUSPENSION, EXTENDED RELEASE;ORAL
Application: N019401 | Product #001
Applicant: UCB INC
Approved: Jun 19, 1987 | RLD: No | RS: No | Type: DISCN